FAERS Safety Report 4814008-5 (Version None)
Quarter: 2005Q4

REPORT INFORMATION
  Report Type: 
  Country: None (occurrence: None)
  Receive Date: 20051028
  Receipt Date: 20050224
  Transmission Date: 20060501
  Serious: No
  Sender: FDA-Public Use
  Company Number: US-GLAXOSMITHKLINE-A0547147A

PATIENT
  Age: 75 Year
  Sex: Female
  Weight: 49.1 kg

DRUGS (4)
  1. SEREVENT [Suspect]
     Indication: DRUG USE FOR UNKNOWN INDICATION
     Dosage: 1PUFF TWICE PER DAY
     Route: 055
     Dates: start: 20030714
  2. EVISTA [Concomitant]
     Route: 048
  3. BENICAR [Concomitant]
     Route: 048
  4. FORTEO [Concomitant]
     Dosage: 20MCG PER DAY
     Route: 042

REACTIONS (3)
  - DYSGEUSIA [None]
  - DYSPNOEA EXACERBATED [None]
  - PHARMACEUTICAL PRODUCT COMPLAINT [None]
